FAERS Safety Report 21345928 (Version 1)
Quarter: 2022Q3

REPORT INFORMATION
  Report Type: Spontaneous
  Country: NL (occurrence: NL)
  Receive Date: 20220916
  Receipt Date: 20220916
  Transmission Date: 20221027
  Serious: Yes (Other)
  Sender: FDA-Public Use
  Company Number: NL-BoehringerIngelheim-2022-BI-192304

PATIENT
  Sex: Female

DRUGS (4)
  1. CLONIDINE HYDROCHLORIDE [Suspect]
     Active Substance: CLONIDINE HYDROCHLORIDE
     Indication: Postoperative care
     Dosage: EENMALIG [ONE-TIME]
     Dates: start: 20220816, end: 20220816
  2. ROPIVACAINE. [Suspect]
     Active Substance: ROPIVACAINE HYDROCHLORIDE
     Indication: Postoperative care
     Dosage: EENMALIG
     Dates: start: 20220816, end: 20220816
  3. DIMENHYDRINATE [Suspect]
     Active Substance: DIMENHYDRINATE
     Indication: Procedural vomiting
     Dosage: 10 MG IV / 10 MG/ 1
     Dates: start: 20220816, end: 20220816
  4. SUFENTANIL [Suspect]
     Active Substance: SUFENTANIL

REACTIONS (1)
  - Depressed level of consciousness [Recovered/Resolved]
